FAERS Safety Report 13076191 (Version 2)
Quarter: 2017Q1

REPORT INFORMATION
  Report Type: Spontaneous
  Country: NL (occurrence: NL)
  Receive Date: 20161230
  Receipt Date: 20170105
  Transmission Date: 20170428
  Serious: Yes (Hospitalization, Other)
  Sender: FDA-Public Use
  Company Number: NL-009507513-1612NLD013731

PATIENT
  Age: 48 Year
  Sex: Female
  Weight: 75 kg

DRUGS (12)
  1. HYDROXOCOBALAMIN CHLORIDE [Concomitant]
     Dosage: START DATE UNKNOWN 1000 MICROGRAM, Q2M ONCE EVERY 2 MONTHS
     Route: 030
  2. AMLODIPINE [Concomitant]
     Active Substance: AMLODIPINE BESYLATE
     Dosage: 1DD1
     Route: 048
  3. RANITIDINE HYDROCHLORIDE. [Concomitant]
     Active Substance: RANITIDINE HYDROCHLORIDE
     Dosage: START DATE UNKNOWN TWICE DAILY 2
     Route: 048
  4. ALBUTEROL SULFATE. [Concomitant]
     Active Substance: ALBUTEROL SULFATE
     Dosage: START DATE UNKNOWN IF NECESSARY
     Route: 055
  5. DESOGESTREL (+) ETHINYL ESTRADIOL [Suspect]
     Active Substance: DESOGESTREL\ETHINYL ESTRADIOL
     Indication: CONTRACEPTION
     Dosage: 1DD1
     Route: 048
     Dates: start: 2000
  6. SERETIDE [Concomitant]
     Active Substance: FLUTICASONE PROPIONATE\SALMETEROL XINAFOATE
     Dosage: START DATE UNKNOWN TWICE DAILY 2
     Route: 055
  7. ADALIMUMAB [Interacting]
     Active Substance: ADALIMUMAB
     Indication: CROHN^S DISEASE
     Route: 058
     Dates: start: 20130101, end: 20161017
  8. ALLOPURINOL. [Concomitant]
     Active Substance: ALLOPURINOL
     Dosage: START DATE UNKNOWN ONCE DAILY 100 MG
     Route: 048
  9. CALCICHEW [Concomitant]
     Active Substance: CALCIUM CARBONATE
     Dosage: START DATE UNKNOWN ONCE DAILY 1
     Route: 048
  10. ALGELDRAAT [Concomitant]
     Dosage: 4DD15ML
     Route: 048
  11. MERCAPTOPURINE. [Concomitant]
     Active Substance: MERCAPTOPURINE
     Dosage: START DATE UNKNOWN ONCE DAILY 25 MG
     Route: 048
  12. METOCLOPRAMIDE. [Concomitant]
     Active Substance: METOCLOPRAMIDE
     Dosage: START DATE UNKNOWN IF NECESSARY 3 TIMES A DAY 1
     Route: 054

REACTIONS (3)
  - Drug interaction [Recovering/Resolving]
  - Cerebral venous thrombosis [Recovering/Resolving]
  - Headache [Recovering/Resolving]

NARRATIVE: CASE EVENT DATE: 20161009
